FAERS Safety Report 7834186-3 (Version None)
Quarter: 2011Q4

REPORT INFORMATION
  Report Type: 
  Country: None (occurrence: None)
  Receive Date: 20111024
  Receipt Date: 20111012
  Transmission Date: 20120403
  Serious: Yes (Other)
  Sender: FDA-Public Use
  Company Number: PHEH2008US06596

PATIENT
  Sex: Male

DRUGS (31)
  1. MULTI-VITAMINS [Concomitant]
     Route: 048
  2. TOPROL-XL [Concomitant]
  3. LISINOPRIL [Concomitant]
  4. ASPIRIN [Concomitant]
  5. GLUCOSAMINE [Concomitant]
     Dosage: 500 MG, TID
  6. AMOXICILLIN [Concomitant]
     Dosage: 500 MG, QD
     Route: 048
  7. LIPITOR [Concomitant]
     Dosage: 40 MG, QD
     Route: 048
  8. NAPROSYN [Concomitant]
     Dosage: 500 MG, PRN
  9. ZOMETA [Suspect]
     Indication: BONE DISORDER
     Dates: start: 20020606
  10. ASPIRIN [Concomitant]
     Dosage: 81 MG, QD
     Route: 048
  11. LIPITOR [Concomitant]
  12. FELDENE [Concomitant]
  13. RANITIDINE [Concomitant]
  14. OXYCONTIN [Concomitant]
  15. PLAVIX [Concomitant]
  16. LASIX [Concomitant]
  17. GLUCOVANCE [Concomitant]
  18. MEXITIL [Concomitant]
     Dosage: 150 MG, TID
  19. CELEBREX [Concomitant]
     Dosage: 200 MG, QD
  20. FISH OIL [Concomitant]
     Dosage: 1000 MG, QD
  21. BENADRYL [Concomitant]
  22. GARLIC [Concomitant]
     Dosage: 500 MG, BID
     Route: 048
  23. METOCLOPRAMIDE [Concomitant]
  24. PROTONIX [Concomitant]
  25. AREDIA [Suspect]
     Indication: BONE DISORDER
     Dates: end: 20020101
  26. FOSAMAX [Suspect]
     Dates: start: 20010101, end: 20020201
  27. PLENDIL [Concomitant]
     Dosage: 5 MG, QD
  28. AMITRIPTYLINE HCL [Concomitant]
  29. LANSOPRAZOLE [Concomitant]
     Dosage: 30 MG, QD
     Route: 048
  30. GLUCOSAMINE SULFATE [Concomitant]
     Dosage: 750 MG, BID
  31. CELEXA [Concomitant]
     Dosage: 60 MG, QHS

REACTIONS (48)
  - NEUROPATHY PERIPHERAL [None]
  - PULMONARY HYPERTENSION [None]
  - RHINORRHOEA [None]
  - ATRIAL FIBRILLATION [None]
  - PATHOLOGICAL FRACTURE [None]
  - CARDIOMYOPATHY [None]
  - LEFT VENTRICULAR HYPERTROPHY [None]
  - OEDEMA PERIPHERAL [None]
  - COUGH [None]
  - DIZZINESS [None]
  - DECREASED INTEREST [None]
  - ORAL CAVITY FISTULA [None]
  - GASTROOESOPHAGEAL REFLUX DISEASE [None]
  - ANEURYSM [None]
  - BRONCHITIS [None]
  - DEPRESSION [None]
  - MEMORY IMPAIRMENT [None]
  - OSTEONECROSIS OF JAW [None]
  - PAIN [None]
  - ABSCESS [None]
  - NEOPLASM MALIGNANT [None]
  - DYSPNOEA [None]
  - HEADACHE [None]
  - SEASONAL ALLERGY [None]
  - ABDOMINAL PAIN UPPER [None]
  - CHOLELITHIASIS [None]
  - INJURY [None]
  - HERPES ZOSTER [None]
  - DYSLIPIDAEMIA [None]
  - SPINAL OSTEOARTHRITIS [None]
  - ANXIETY [None]
  - PERIODONTITIS [None]
  - OSTEOPOROSIS [None]
  - PULMONARY EMBOLISM [None]
  - MYOCARDIAL INFARCTION [None]
  - CARDIAC FAILURE CONGESTIVE [None]
  - DILATATION ATRIAL [None]
  - MITRAL VALVE INCOMPETENCE [None]
  - ARTHRALGIA [None]
  - CHRONIC OBSTRUCTIVE PULMONARY DISEASE [None]
  - CONSTIPATION [None]
  - HYPERPLASIA [None]
  - LYMPHADENITIS [None]
  - BLADDER CANCER [None]
  - EJECTION FRACTION DECREASED [None]
  - SCOLIOSIS [None]
  - SINUS CONGESTION [None]
  - CHOLECYSTITIS CHRONIC [None]
